FAERS Safety Report 6094084-5 (Version None)
Quarter: 2009Q1

REPORT INFORMATION
  Report Type: 
  Country: None (occurrence: None)
  Receive Date: 20090226
  Receipt Date: 20090218
  Transmission Date: 20090719
  Serious: Yes (Other)
  Sender: FDA-Public Use
  Company Number: FR-JNJFOC-20081203164

PATIENT
  Sex: Female
  Weight: 59 kg

DRUGS (7)
  1. REMINYL LP [Suspect]
     Indication: DEMENTIA ALZHEIMER'S TYPE
     Route: 048
     Dates: start: 20081031, end: 20081105
  2. MONOTILDIEM [Suspect]
     Indication: HYPERTENSION
     Route: 048
  3. SEROPLEX [Concomitant]
     Indication: DEPRESSION
     Route: 048
  4. CALCIDOSE [Concomitant]
     Indication: OSTEOPOROSIS
     Route: 048
  5. KARDEGIC [Concomitant]
     Indication: CARDIAC DISORDER
     Route: 048
  6. OGAST [Concomitant]
     Indication: GASTROINTESTINAL DISORDER THERAPY
     Route: 048
  7. RIVOTRIL [Concomitant]
     Route: 048

REACTIONS (4)
  - BRADYCARDIA [None]
  - CHEST PAIN [None]
  - EXTRASYSTOLES [None]
  - MALAISE [None]
